FAERS Safety Report 8676414 (Version 2)
Quarter: 2013Q3

REPORT INFORMATION
  Report Type: Report from Study
  Country: IN (occurrence: IN)
  Receive Date: 20120720
  Receipt Date: 20130903
  Transmission Date: 20140515
  Serious: Yes (Hospitalization, Other)
  Sender: FDA-Public Use
  Company Number: PHHO2011IN11841

PATIENT
  Age: 60 Year
  Sex: Male

DRUGS (16)
  1. ACETYLSALICYLIC ACID [Suspect]
  2. ALISKIREN [Suspect]
     Indication: CARDIOVASCULAR DISORDER
     Route: 048
     Dates: start: 20110315, end: 20110719
  3. CLOPIDOGREL [Suspect]
     Dosage: 75 MG, QD
     Dates: start: 2008
  4. HUMAN MIXTARD 30/70 [Concomitant]
     Indication: DIABETES MELLITUS
     Dosage: 20-0-14 IU
     Route: 058
     Dates: start: 2008
  5. HUMAN MIXTARD 30/70 [Concomitant]
     Dosage: 20-0-16 U S/E
     Dates: start: 20110730
  6. HUMAN ACTRAPID [Concomitant]
     Indication: DIABETES MELLITUS
     Dosage: 20 U, UNK
     Dates: start: 20091022
  7. HUMAN ACTRAPID [Concomitant]
     Dates: start: 20110730
  8. METOPROLOL [Concomitant]
     Indication: CARDIOVASCULAR DISORDER
     Dates: start: 2008
  9. METOPROLOL [Concomitant]
     Dosage: 25 MG, QD
     Dates: start: 20110731
  10. LOSARTAN [Concomitant]
     Indication: HYPERTENSION
     Dates: start: 2008
  11. IVABRADINE [Concomitant]
     Indication: CARDIOVASCULAR DISORDER
     Dates: start: 20100702
  12. IVABRADINE [Concomitant]
     Indication: ANGINA PECTORIS
     Dosage: 5 MG, 1/3-0-0
     Dates: start: 20110728
  13. CLONIDINE [Concomitant]
  14. ATORVASTATIN [Concomitant]
     Indication: DYSLIPIDAEMIA
     Dosage: 10 MG, QD
     Dates: start: 20110720
  15. ARIPIPRAZOLE [Concomitant]
     Indication: SCHIZOPHRENIA
     Dosage: 10 MG, QD
     Dates: start: 20110727
  16. CLOPITAB-A [Concomitant]
     Indication: MYOCARDIAL ISCHAEMIA
     Dosage: 75 MG, QD
     Route: 048

REACTIONS (5)
  - Subdural haemorrhage [Recovered/Resolved]
  - Spinal cord injury cervical [Recovering/Resolving]
  - Concomitant disease progression [Recovering/Resolving]
  - Urinary tract infection [Unknown]
  - Renal failure chronic [Unknown]
